FAERS Safety Report 5944452-4 (Version None)
Quarter: 2008Q4

REPORT INFORMATION
  Report Type: 
  Country: None (occurrence: None)
  Receive Date: 20081107
  Receipt Date: 20081031
  Transmission Date: 20090506
  Serious: Yes (Hospitalization, Other)
  Sender: FDA-Public Use
  Company Number: PL-JNJFOC-20081007003

PATIENT
  Age: 35 Year
  Sex: Male

DRUGS (4)
  1. RISPOLEPT CONSTA [Suspect]
     Indication: SCHIZOPHRENIA, PARANOID TYPE
     Route: 065
  2. RISPERIDONE [Suspect]
     Dosage: 2-4 MG
  3. RISPERIDONE [Suspect]
     Indication: SCHIZOPHRENIA, PARANOID TYPE
     Dosage: 4-6MG
  4. DECALDOL [Suspect]
     Indication: SCHIZOPHRENIA, PARANOID TYPE
     Route: 042

REACTIONS (2)
  - HOMICIDE [None]
  - SCHIZOPHRENIA [None]
